FAERS Safety Report 12286363 (Version 1)
Quarter: 2016Q2

REPORT INFORMATION
  Report Type: Spontaneous
  Country: US (occurrence: US)
  Receive Date: 20160420
  Receipt Date: 20160420
  Transmission Date: 20160815
  Serious: No
  Sender: FDA-Public Use
  Company Number: US-PFIZER INC-2016210868

PATIENT
  Age: 49 Year
  Sex: Female
  Weight: 77.11 kg

DRUGS (3)
  1. LOVENOX [Concomitant]
     Active Substance: ENOXAPARIN SODIUM
  2. OXYCODONE [Concomitant]
     Active Substance: OXYCODONE
  3. ATORVASTATIN CALCIUM. [Suspect]
     Active Substance: ATORVASTATIN CALCIUM
     Dosage: 20MG ONCE A DAY BEFORE BED
     Dates: start: 201602

REACTIONS (1)
  - Phantom pain [Recovering/Resolving]
